FAERS Safety Report 16322809 (Version 2)
Quarter: 2019Q3

REPORT INFORMATION
  Report Type: Spontaneous
  Country: CA (occurrence: CA)
  Receive Date: 20190516
  Receipt Date: 20190711
  Transmission Date: 20191004
  Serious: Yes (Hospitalization, Other)
  Sender: FDA-Public Use
  Company Number: CA-CELLTRION INC.-2018CA024327

PATIENT

DRUGS (8)
  1. INFLECTRA [Suspect]
     Active Substance: INFLIXIMAB-DYYB
     Dosage: 385 MG, Q , 0, 2, 6 WEEKS, THEN EVERY 8 WEEKS
     Route: 042
     Dates: start: 20181113
  2. INFLECTRA [Suspect]
     Active Substance: INFLIXIMAB-DYYB
     Dosage: 385 MG, Q ,0, 2, 6 WEEKS, THEN EVERY 8 WEEKS
     Route: 042
     Dates: start: 20190108
  3. INFLECTRA [Suspect]
     Active Substance: INFLIXIMAB-DYYB
     Dosage: 10 MG/KG, (EVERY 8 WEEKS)
     Route: 042
     Dates: start: 20190305, end: 20190305
  4. INFLECTRA [Suspect]
     Active Substance: INFLIXIMAB-DYYB
     Dosage: 385 MG, Q ,0, 2, 6 WEEKS, THEN EVERY 8 WEEKS
     Route: 042
     Dates: start: 20181016
  5. INFLECTRA [Suspect]
     Active Substance: INFLIXIMAB-DYYB
     Dosage: 385 MG, Q ,0, 2, 6 WEEKS, THEN EVERY 8 WEEKS
     Route: 042
     Dates: start: 20190108
  6. METHOTREXATE. [Concomitant]
     Active Substance: METHOTREXATE
     Dosage: 25 MG, UNK
     Route: 058
     Dates: start: 201804
  7. INFLECTRA [Suspect]
     Active Substance: INFLIXIMAB-DYYB
     Indication: CROHN^S DISEASE
     Dosage: 385 MG, Q , 0, 2, 6 WEEKS, THEN EVERY 8 WEEKS
     Route: 042
     Dates: start: 20181004, end: 20190108
  8. INFLECTRA [Suspect]
     Active Substance: INFLIXIMAB-DYYB
     Dosage: 385 MG, Q ,0, 2, 6 WEEKS, THEN EVERY 8 WEEKS
     Route: 042
     Dates: start: 20181113

REACTIONS (13)
  - Disease recurrence [Unknown]
  - Palpitations [Unknown]
  - Cerebrovascular accident [Unknown]
  - Arrhythmia [Unknown]
  - Pleural effusion [Unknown]
  - Heart rate irregular [Unknown]
  - Atrial flutter [Unknown]
  - Condition aggravated [Unknown]
  - Blood pressure fluctuation [Unknown]
  - Feeling cold [Recovered/Resolved]
  - Body temperature increased [Unknown]
  - Productive cough [Unknown]
  - Pericarditis [Unknown]

NARRATIVE: CASE EVENT DATE: 20181113
